FAERS Safety Report 17328978 (Version 1)
Quarter: 2020Q1

REPORT INFORMATION
  Report Type: Spontaneous
  Country: FR (occurrence: FR)
  Receive Date: 20200127
  Receipt Date: 20200127
  Transmission Date: 20200409
  Serious: Yes (Hospitalization, Other)
  Sender: FDA-Public Use
  Company Number: FR-MYLANLABS-2020M1008662

PATIENT
  Age: 10 Year
  Sex: Female
  Weight: 25.5 kg

DRUGS (11)
  1. GENTAMICINE PANPHARMA [Suspect]
     Active Substance: GENTAMICIN
     Indication: PYREXIA
     Dosage: 125 MG, QD
     Route: 042
     Dates: start: 20170718, end: 20170804
  2. BACTRIM [Suspect]
     Active Substance: SULFAMETHOXAZOLE\TRIMETHOPRIM
     Indication: PROPHYLAXIS
     Dosage: 2 DF, TIW (0.8571 DF)
     Route: 048
     Dates: start: 20170729, end: 20170807
  3. AMBISOME [Suspect]
     Active Substance: AMPHOTERICIN B
     Indication: PYREXIA
     Dosage: 75 MILLIGRAM, QD
     Route: 041
     Dates: start: 20170726, end: 20170804
  4. FERROSTRANE [Suspect]
     Active Substance: SODIUM FEREDETATE
     Indication: MICROCYTIC ANAEMIA
     Dosage: 0.5 DF, QD
     Route: 048
     Dates: start: 20170720, end: 20170807
  5. PARACETAMOL [Concomitant]
     Active Substance: ACETAMINOPHEN
     Indication: PYREXIA
     Dosage: ON DEMAND
     Route: 065
     Dates: start: 20170717
  6. VANCOMYCIN MYLAN [Suspect]
     Active Substance: VANCOMYCIN
     Indication: PYREXIA
     Dosage: 625 MG, BID
     Route: 041
     Dates: start: 20170718, end: 20170804
  7. ZOPHREN                            /00955301/ [Suspect]
     Active Substance: ONDANSETRON
     Indication: VOMITING
     Dosage: 5 DOSES (1 DF, 1 ON DEMAND)
     Route: 065
     Dates: start: 20170722, end: 20170806
  8. LASILIX                            /00032601/ [Suspect]
     Active Substance: FUROSEMIDE
     Indication: PROPHYLAXIS
     Dosage: 25 MG, QD
     Route: 048
     Dates: start: 20170717, end: 20170804
  9. PRIVIGEN [Suspect]
     Active Substance: HUMAN IMMUNOGLOBULIN G
     Indication: IMMUNOSUPPRESSION
     Dosage: 3 DF, QD (1 DF, 3 IN 1 CYCLE)
     Route: 065
     Dates: start: 20170722, end: 20170724
  10. NUROFENPRO [Suspect]
     Active Substance: IBUPROFEN
     Indication: PYREXIA
     Dosage: 250 MG, TID
     Route: 048
     Dates: start: 20170731, end: 20170804
  11. KARDEGIC [Concomitant]
     Active Substance: ASPIRIN DL-LYSINE
     Indication: CARDIAC OPERATION
     Dosage: UNK
     Route: 048
     Dates: start: 20170708

REACTIONS (6)
  - Antibiotic level above therapeutic [Unknown]
  - Pyrexia [Recovered/Resolved]
  - Rash [Recovered/Resolved]
  - Renal failure [Unknown]
  - Lymphadenopathy [Recovered/Resolved]
  - Pancytopenia [Recovered/Resolved]

NARRATIVE: CASE EVENT DATE: 20170724
